FAERS Safety Report 8247481-3 (Version None)
Quarter: 2012Q1

REPORT INFORMATION
  Report Type: 
  Country: None (occurrence: None)
  Receive Date: 20120316
  Receipt Date: 20081201
  Transmission Date: 20120608
  Serious: Yes (Other)
  Sender: FDA-Public Use
  Company Number: PHEH2008US10777

PATIENT
  Sex: Female

DRUGS (2)
  1. TEKTURNA [Suspect]
  2. AMLODIPINE [Suspect]

REACTIONS (2)
  - JOINT SWELLING [None]
  - OEDEMA PERIPHERAL [None]
